FAERS Safety Report 16638348 (Version 1)
Quarter: 2019Q3

REPORT INFORMATION
  Report Type: Spontaneous
  Country: US (occurrence: US)
  Receive Date: 20190614
  Receipt Date: 20190614
  Transmission Date: 20191004
  Serious: Yes (Hospitalization)
  Sender: FDA-Public Use
  Company Number: None

PATIENT
  Age: 4 Year
  Sex: Female

DRUGS (3)
  1. VENTOLIN HFA AER [Concomitant]
  2. AERCMMBER FLS MIS FLOW-VU [Concomitant]
  3. PULMOZYME [Suspect]
     Active Substance: DORNASE ALFA
     Indication: CYSTIC FIBROSIS
     Dates: start: 20161122

REACTIONS (1)
  - Adenoidectomy [None]

NARRATIVE: CASE EVENT DATE: 20190501
